FAERS Safety Report 5216642-X (Version None)
Quarter: 2007Q1

REPORT INFORMATION
  Report Type: 
  Country: None (occurrence: None)
  Receive Date: 20061130
  Receipt Date: 20060418
  Transmission Date: 20070707
  Serious: Yes (Other)
  Sender: FDA-Public Use
  Company Number: US200604003042

PATIENT
  Age: 32 Year
  Sex: Male
  Weight: 126.1 kg

DRUGS (1)
  1. ZYPREXA [Suspect]
     Indication: SCHIZOPHRENIA
     Dosage: 25 MG
     Dates: start: 20030101

REACTIONS (2)
  - PRESCRIBED OVERDOSE [None]
  - WEIGHT INCREASED [None]
